FAERS Safety Report 16346794 (Version 1)
Quarter: 2019Q2

REPORT INFORMATION
  Report Type: Spontaneous
  Country: US (occurrence: US)
  Receive Date: 20190523
  Receipt Date: 20190523
  Transmission Date: 20190711
  Serious: Yes (Death, Other)
  Sender: FDA-Public Use
  Company Number: PHEH2019US022077

PATIENT
  Age: 4 Year
  Sex: Male

DRUGS (1)
  1. KYMRIAH [Suspect]
     Active Substance: TISAGENLECLEUCEL
     Indication: B-CELL TYPE ACUTE LEUKAEMIA
     Dosage: UNK, ONCE/SINGLE
     Route: 042
     Dates: start: 20180625

REACTIONS (3)
  - Acute lymphocytic leukaemia recurrent [Unknown]
  - Megacolon [Fatal]
  - Sepsis [Fatal]

NARRATIVE: CASE EVENT DATE: 201904
